FAERS Safety Report 20773140 (Version 2)
Quarter: 2022Q4

REPORT INFORMATION
  Report Type: Spontaneous
  Country: DE (occurrence: DE)
  Receive Date: 20220502
  Receipt Date: 20221208
  Transmission Date: 20230112
  Serious: Yes (Other)
  Sender: FDA-Public Use
  Company Number: DE-LUPIN PHARMACEUTICALS INC.-2022-06294

PATIENT
  Age: 6 Year
  Sex: Female

DRUGS (20)
  1. HYDROXYCHLOROQUINE [Suspect]
     Active Substance: HYDROXYCHLOROQUINE
     Indication: Malignant atrophic papulosis
     Dosage: 100 MG, QD (4 MG/KG PER DAY)
     Route: 048
  2. HYDROXYCHLOROQUINE [Suspect]
     Active Substance: HYDROXYCHLOROQUINE
     Indication: Nervous system disorder
  3. LEVETIRACETAM [Suspect]
     Active Substance: LEVETIRACETAM
     Indication: Malignant atrophic papulosis
     Dosage: 40 MILLIGRAM/KILOGRAM, QD
     Route: 065
  4. LEVETIRACETAM [Suspect]
     Active Substance: LEVETIRACETAM
     Indication: Nervous system disorder
  5. CYCLOPHOSPHAMIDE [Suspect]
     Active Substance: CYCLOPHOSPHAMIDE
     Indication: Malignant atrophic papulosis
     Dosage: UNK, QD (25 MILLIGRAM PER SQUARE METRE)
     Route: 065
  6. CYCLOPHOSPHAMIDE [Suspect]
     Active Substance: CYCLOPHOSPHAMIDE
     Indication: Nervous system disorder
  7. METHYLPREDNISOLONE [Suspect]
     Active Substance: METHYLPREDNISOLONE
     Indication: Malignant atrophic papulosis
     Dosage: 30 MILLIGRAM/KILOGRAM, QD
     Route: 042
  8. METHYLPREDNISOLONE [Suspect]
     Active Substance: METHYLPREDNISOLONE
     Indication: Nervous system disorder
  9. IMMUNE GLOBULIN NOS [Suspect]
     Active Substance: IMMUNE GLOBULIN NOS
     Indication: Malignant atrophic papulosis
     Dosage: 2 MILLIGRAM PER KILOGRAM (ADMINISTERED 1 CYCLE)
     Route: 042
  10. IMMUNE GLOBULIN NOS [Suspect]
     Active Substance: IMMUNE GLOBULIN NOS
     Indication: Nervous system disorder
  11. RITUXIMAB [Suspect]
     Active Substance: RITUXIMAB
     Indication: Malignant atrophic papulosis
     Dosage: 375 MILLIGRAM PER SQUARE METRE (ADMINISTERED TWO DOSES)
     Route: 065
  12. RITUXIMAB [Suspect]
     Active Substance: RITUXIMAB
     Indication: Nervous system disorder
  13. TOCILIZUMAB [Suspect]
     Active Substance: TOCILIZUMAB
     Indication: Malignant atrophic papulosis
     Dosage: 200 MG 2 WEEKS (ADMINISTERED BETWEEN AGE 8 AND 9 YEARS)
     Route: 065
  14. TOCILIZUMAB [Suspect]
     Active Substance: TOCILIZUMAB
     Indication: Nervous system disorder
  15. ASPIRIN [Suspect]
     Active Substance: ASPIRIN
     Indication: Malignant atrophic papulosis
     Dosage: 50 MG, QD
     Route: 065
  16. ASPIRIN [Suspect]
     Active Substance: ASPIRIN
     Indication: Nervous system disorder
  17. ANIFROLUMAB [Concomitant]
     Active Substance: ANIFROLUMAB
     Indication: Malignant atrophic papulosis
     Dosage: 200 MG EVERY 4 WEEK
     Route: 042
  18. ANIFROLUMAB [Concomitant]
     Active Substance: ANIFROLUMAB
     Indication: Nervous system disorder
     Dosage: 150 MG EVERY 04-WEEK
     Route: 042
  19. BARICITINIB [Concomitant]
     Active Substance: BARICITINIB
     Indication: Malignant atrophic papulosis
     Dosage: 0.5 MG, QD (0.025 MILLIGRAM PER KILOGRAM PER DAY)
     Route: 048
  20. BARICITINIB [Concomitant]
     Active Substance: BARICITINIB
     Indication: Nervous system disorder
     Dosage: 0.4 MILLIGRAM/KILOGRAM, QD
     Route: 048

REACTIONS (2)
  - Drug ineffective for unapproved indication [Unknown]
  - Off label use [Unknown]
